FAERS Safety Report 8147752-5 (Version None)
Quarter: 2012Q1

REPORT INFORMATION
  Report Type: 
  Country: None (occurrence: None)
  Receive Date: 20120218
  Receipt Date: 20110311
  Transmission Date: 20120608
  Serious: No
  Sender: FDA-Public Use
  Company Number: US-ALLERGAN-1103556US

PATIENT
  Age: 46 Year
  Sex: Male
  Weight: 69.388 kg

DRUGS (1)
  1. BOTOX COSMETIC [Suspect]
     Indication: SKIN WRINKLING
     Dosage: UNK
     Dates: start: 20110129, end: 20110129

REACTIONS (2)
  - VISUAL IMPAIRMENT [None]
  - HYPOAESTHESIA [None]
